FAERS Safety Report 11844026 (Version 2)
Quarter: 2015Q4

REPORT INFORMATION
  Report Type: Spontaneous
  Country: US (occurrence: US)
  Receive Date: 20151217
  Receipt Date: 20151217
  Transmission Date: 20160305
  Serious: No
  Sender: FDA-Public Use
  Company Number: US-BAYER-2015-488423

PATIENT
  Age: 31 Year
  Sex: Male
  Weight: 78.5 kg

DRUGS (2)
  1. ALEVE [Suspect]
     Active Substance: NAPROXEN SODIUM
     Dosage: 2 DF, QD
     Route: 048
  2. PAIN STOPPER EXTRA [Suspect]
     Active Substance: ACETAMINOPHEN\ASPIRIN\CAFFEINE\SALICYLAMIDE
     Dosage: UNK UNK, PRN
     Route: 048
     Dates: start: 2015, end: 20151208

REACTIONS (3)
  - Drug screen positive [None]
  - Drug ineffective [None]
  - Drug screen positive [None]

NARRATIVE: CASE EVENT DATE: 20151201
